FAERS Safety Report 14010530 (Version 1)
Quarter: 2017Q3

REPORT INFORMATION
  Report Type: Spontaneous
  Country: US (occurrence: US)
  Receive Date: 20170926
  Receipt Date: 20170926
  Transmission Date: 20171128
  Serious: No
  Sender: FDA-Public Use
  Company Number: US-009507513-1709USA001986

PATIENT

DRUGS (1)
  1. INTRON A [Suspect]
     Active Substance: INTERFERON ALFA-2B
     Dosage: EYE DROPS, UNK
     Route: 047

REACTIONS (3)
  - Product use issue [Unknown]
  - No adverse event [Unknown]
  - Product preparation error [Unknown]
